FAERS Safety Report 12146006 (Version 1)
Quarter: 2016Q1

REPORT INFORMATION
  Report Type: Spontaneous
  Country: US (occurrence: US)
  Receive Date: 20160303
  Receipt Date: 20160303
  Transmission Date: 20160526
  Serious: Yes (Other)
  Sender: FDA-Public Use
  Company Number: US-ABBVIE-15P-163-1511654-00

PATIENT
  Sex: Male

DRUGS (2)
  1. TESTIM [Suspect]
     Active Substance: TESTOSTERONE
     Indication: BLOOD TESTOSTERONE DECREASED
     Route: 065
     Dates: start: 200504
  2. ANDROGEL [Suspect]
     Active Substance: TESTOSTERONE
     Indication: BLOOD TESTOSTERONE DECREASED
     Route: 061
     Dates: start: 200506

REACTIONS (10)
  - Pain [Unknown]
  - Physical disability [Unknown]
  - Social problem [Unknown]
  - Economic problem [Unknown]
  - Myocardial infarction [Unknown]
  - Myocardial infarction [Unknown]
  - Anhedonia [Unknown]
  - Anxiety [Unknown]
  - Fear [Unknown]
  - Injury [Unknown]

NARRATIVE: CASE EVENT DATE: 200607
